FAERS Safety Report 4326028-8 (Version None)
Quarter: 2004Q1

REPORT INFORMATION
  Report Type: 
  Country: None (occurrence: None)
  Receive Date: 20040329
  Receipt Date: 20040317
  Transmission Date: 20041129
  Serious: Yes (Other)
  Sender: FDA-Public Use
  Company Number: PHBS2004JP03741

PATIENT

DRUGS (4)
  1. SIMULECT [Suspect]
     Indication: RENAL TRANSPLANT
     Dosage: 20 MG, ONCE/SINGLE
     Route: 042
     Dates: start: 20040316, end: 20040316
  2. ANAESTHETICS [Concomitant]
     Dates: start: 20040316
  3. SANDIMMUNE [Concomitant]
     Route: 042
     Dates: start: 20040316
  4. SOLU-MEDROL [Concomitant]
     Route: 042
     Dates: start: 20040316

REACTIONS (3)
  - HOARSENESS [None]
  - PHARYNGEAL OEDEMA [None]
  - POST PROCEDURAL COMPLICATION [None]
